FAERS Safety Report 4833062-8 (Version None)
Quarter: 2005Q4

REPORT INFORMATION
  Report Type: 
  Country: None (occurrence: None)
  Receive Date: 20051121
  Receipt Date: 20050323
  Transmission Date: 20060501
  Serious: Yes (Other)
  Sender: FDA-Public Use
  Company Number: US-ROCHE-399842

PATIENT
  Age: 60 Year
  Sex: Female
  Weight: 56.7 kg

DRUGS (8)
  1. PEGASYS [Suspect]
     Indication: HEPATITIS C VIRUS
     Route: 058
     Dates: start: 20040815, end: 20050123
  2. RIBAVIRIN [Suspect]
     Indication: HEPATITIS C VIRUS
     Dosage: REGIMEN REPORTED AS 2 IN AM AND 2 IN PM.
     Route: 048
     Dates: start: 20040815, end: 20050129
  3. ALBUTEROL [Concomitant]
     Indication: ASTHMA
     Route: 055
  4. LORATADINE [Concomitant]
     Indication: ASTHMA
     Route: 048
  5. PREMARIN [Concomitant]
     Indication: HORMONE REPLACEMENT THERAPY
     Route: 048
  6. NORTRIPTYLINE HCL [Concomitant]
     Indication: NECK PAIN
     Dosage: THE PATIENT STARTED WITH 5 DOSE FORMS AT BEDTIME, THEN DOSE WAS INCREASED TO 50 MG, THEN 90 MG AND +
     Route: 048
  7. VERAPAMIL [Concomitant]
     Indication: HYPERTENSION
     Route: 048
  8. LOVASTATIN [Concomitant]
     Indication: BLOOD CHOLESTEROL INCREASED
     Route: 048

REACTIONS (14)
  - DYSPHAGIA [None]
  - FALL [None]
  - FATIGUE [None]
  - MICROANGIOPATHY [None]
  - ORAL CANDIDIASIS [None]
  - PHARYNGOLARYNGEAL PAIN [None]
  - PYREXIA [None]
  - ROTATOR CUFF SYNDROME [None]
  - SHOULDER PAIN [None]
  - SKIN LESION [None]
  - SLEEP APNOEA SYNDROME [None]
  - TRIGEMINAL NERVE DISORDER [None]
  - WHEEZING [None]
  - WHITE BLOOD CELL COUNT DECREASED [None]
